FAERS Safety Report 26067257 (Version 1)
Quarter: 2025Q4

REPORT INFORMATION
  Report Type: Report from Study
  Country: US (occurrence: US)
  Receive Date: 20251120
  Receipt Date: 20251120
  Transmission Date: 20260118
  Serious: Yes (Death)
  Sender: ABBVIE
  Company Number: US-ABBVIE-6555378

PATIENT
  Age: 90 Year
  Sex: Female

DRUGS (5)
  1. SKYRIZI [Suspect]
     Active Substance: RISANKIZUMAB-RZAA
     Indication: Crohn^s disease
     Dosage: STRENGTH:360MG/2.4M, WEEK 12
     Route: 058
     Dates: start: 202408, end: 202408
  2. SKYRIZI [Suspect]
     Active Substance: RISANKIZUMAB-RZAA
     Dosage: STRENGTH:360MG/2.4M
     Route: 058
     Dates: start: 20250411
  3. SKYRIZI [Suspect]
     Active Substance: RISANKIZUMAB-RZAA
     Indication: Crohn^s disease
     Dosage: TIME INTERVAL: TOTAL: WEEK 0
     Route: 042
     Dates: start: 20240607, end: 20240607
  4. SKYRIZI [Suspect]
     Active Substance: RISANKIZUMAB-RZAA
     Indication: Crohn^s disease
     Dosage: TIME INTERVAL: TOTAL: WEEK 4
     Route: 042
     Dates: start: 20240705, end: 20240705
  5. SKYRIZI [Suspect]
     Active Substance: RISANKIZUMAB-RZAA
     Indication: Crohn^s disease
     Dosage: TIME INTERVAL: TOTAL: WEEK 8
     Route: 042
     Dates: start: 20240802, end: 20240802

REACTIONS (1)
  - Death [Fatal]

NARRATIVE: CASE EVENT DATE: 20251001
